FAERS Safety Report 7012631-3 (Version None)
Quarter: 2010Q3

REPORT INFORMATION
  Report Type: 
  Country: None (occurrence: None)
  Receive Date: 20100924
  Receipt Date: 20100910
  Transmission Date: 20110219
  Serious: Yes (Death, Hospitalization, Other)
  Sender: FDA-Public Use
  Company Number: US-ROCHE-672421

PATIENT
  Sex: Female
  Weight: 53.5 kg

DRUGS (17)
  1. BEVACIZUMAB [Suspect]
     Indication: GLIOBLASTOMA MULTIFORME
     Dosage: 454 MG, UNK
     Route: 042
     Dates: start: 20090812, end: 20090923
  2. BEVACIZUMAB [Suspect]
     Dosage: 492 MG, UNK. ROUTE: UNKNOWN
     Route: 042
     Dates: start: 20091103
  3. BEVACIZUMAB [Suspect]
     Route: 042
     Dates: start: 20091201, end: 20091229
  4. TEMODAR [Concomitant]
     Indication: GLIOBLASTOMA MULTIFORME
     Dosage: 115 MG, UNK
     Dates: start: 20090812, end: 20090923
  5. EVEROLIMUS [Concomitant]
     Indication: GLIOBLASTOMA MULTIFORME
     Dosage: 10 MG, QD
     Route: 048
     Dates: start: 20091103, end: 20091119
  6. ATIVAN [Concomitant]
     Dosage: FREQUENCY: PRN
     Route: 048
     Dates: start: 20090716
  7. XANAX [Concomitant]
     Indication: ANXIETY
     Route: 048
     Dates: start: 20090716, end: 20100914
  8. XANAX [Concomitant]
     Dosage: FREQUENCY: PRN.
     Route: 048
     Dates: start: 20100726
  9. MORPHINE [Concomitant]
     Route: 048
     Dates: start: 20090805, end: 20091127
  10. DILANTIN [Concomitant]
     Dosage: DRUG REPORTED AS DILANTIN EXTENDED, INDICATION: ANTI-SEIZURE.
     Route: 048
     Dates: start: 20090805, end: 20100914
  11. KEPPRA [Concomitant]
     Dosage: FREQUENCY: QD.
     Route: 048
     Dates: start: 20091015, end: 20100914
  12. SENOKOT [Concomitant]
     Dosage: DRUG REPORTED AS SENOKOT S. DOSE: 8.6-50 MG
     Route: 048
     Dates: start: 20090805
  13. PEPCID [Concomitant]
     Route: 048
     Dates: start: 20090805
  14. VALTREX [Concomitant]
     Route: 048
     Dates: start: 20090805
  15. ACETAMINOPHEN [Concomitant]
     Route: 048
     Dates: start: 20091024
  16. ZOLOFT [Concomitant]
     Indication: INSOMNIA
     Route: 048
     Dates: start: 20090820
  17. PARADEX [Concomitant]
     Dosage: DOSE: SWISH BID, INDICATION: DENTAL EXTRACTIONS AND PAIN.
     Route: 048
     Dates: start: 20091001, end: 20100914

REACTIONS (4)
  - CONVULSION [None]
  - DEATH [None]
  - INTERSTITIAL LUNG DISEASE [None]
  - PNEUMONITIS [None]
